FAERS Safety Report 7963685-9 (Version None)
Quarter: 2011Q4

REPORT INFORMATION
  Report Type: 
  Country: None (occurrence: None)
  Receive Date: 20111208
  Receipt Date: 20111104
  Transmission Date: 20120403
  Serious: No
  Sender: FDA-Public Use
  Company Number: US-BAYER-2011-108048

PATIENT
  Age: 70 Year
  Sex: Female
  Weight: 70 kg

DRUGS (6)
  1. ANTIHYPERTENSIVES [Concomitant]
  2. BUSPAR [Concomitant]
  3. CLARITIN [Concomitant]
  4. PREVACID [Concomitant]
  5. CARDIAC THERAPY [Concomitant]
  6. ALEVE (CAPLET) [Suspect]
     Indication: ARTHRITIS
     Dosage: 1 TAB
     Route: 048
     Dates: start: 20111103, end: 20111103

REACTIONS (2)
  - ORAL DISCOMFORT [None]
  - GLOSSODYNIA [None]
